FAERS Safety Report 5688135-7 (Version None)
Quarter: 2008Q1

REPORT INFORMATION
  Report Type: 
  Country: None (occurrence: None)
  Receive Date: 20080327
  Receipt Date: 20080314
  Transmission Date: 20080703
  Serious: Yes (Congenital Anomaly)
  Sender: FDA-Public Use
  Company Number: 2008S1000089

PATIENT
  Sex: 0

DRUGS (1)
  1. SORIATANE [Suspect]
     Dosage: TRPL
     Route: 064

REACTIONS (5)
  - CEREBRAL CYST [None]
  - DRUG EXPOSURE DURING PREGNANCY [None]
  - MULTIPLE CONGENITAL ABNORMALITIES [None]
  - POSTMATURE BABY [None]
  - SINGLE UMBILICAL ARTERY [None]
